FAERS Safety Report 8171147-1 (Version None)
Quarter: 2012Q1

REPORT INFORMATION
  Report Type: 
  Country: None (occurrence: None)
  Receive Date: 20120228
  Receipt Date: 20111107
  Transmission Date: 20120608
  Serious: No
  Sender: FDA-Public Use
  Company Number: US-BRISTOL-MYERS SQUIBB COMPANY-16184400

PATIENT
  Age: 57 Year
  Sex: Male

DRUGS (3)
  1. VITAMIN D [Concomitant]
  2. ASPIRIN [Concomitant]
  3. ONGLYZA [Suspect]
     Indication: TYPE 2 DIABETES MELLITUS
     Route: 048
     Dates: start: 20100801, end: 20110823

REACTIONS (1)
  - NIGHTMARE [None]
